FAERS Safety Report 7382092-3 (Version None)
Quarter: 2011Q1

REPORT INFORMATION
  Report Type: 
  Country: None (occurrence: None)
  Receive Date: 20110329
  Receipt Date: 20101220
  Transmission Date: 20110831
  Serious: Yes (Other)
  Sender: FDA-Public Use
  Company Number: US-BAYER-201034915NA

PATIENT
  Sex: Female
  Weight: 54.422 kg

DRUGS (5)
  1. IBUPROFEN [Concomitant]
  2. CARAFATE [Concomitant]
     Indication: PRODUCT USED FOR UNKNOWN INDICATION
  3. OCELLA [Suspect]
  4. YAZ [Suspect]
     Indication: CONTRACEPTION
     Dosage: UNK
  5. YASMIN [Suspect]
     Indication: CONTRACEPTION

REACTIONS (13)
  - ABDOMINAL PAIN UPPER [None]
  - GALLBLADDER DISORDER [None]
  - NAUSEA [None]
  - DIARRHOEA [None]
  - WEIGHT DECREASED [None]
  - INJURY [None]
  - SCAR [None]
  - ERUCTATION [None]
  - BILE DUCT STONE [None]
  - BILE DUCT OBSTRUCTION [None]
  - BILE DUCT STENOSIS [None]
  - CHOLECYSTITIS CHRONIC [None]
  - VOMITING [None]
